FAERS Safety Report 9161112 (Version 2)
Quarter: 2013Q2

REPORT INFORMATION
  Report Type: Spontaneous
  Country: US (occurrence: US)
  Receive Date: 20130313
  Receipt Date: 20130522
  Transmission Date: 20140414
  Serious: Yes (Other)
  Sender: FDA-Public Use
  Company Number: CHPA2013US004297

PATIENT
  Age: 74 Year
  Sex: Female

DRUGS (10)
  1. MAALOX UNKNOWN [Suspect]
     Indication: GASTROOESOPHAGEAL REFLUX DISEASE
     Dosage: 2 TO 8 UNK, A DAY
     Route: 048
  2. MAALOX UNKNOWN [Suspect]
     Indication: HYPERCHLORHYDRIA
     Dosage: UNK, NO MORE THAN 6/DAY
     Route: 048
  3. MAALOX UNKNOWN [Suspect]
     Indication: DYSPEPSIA
  4. MAALOX UNKNOWN [Suspect]
     Indication: ABDOMINAL DISCOMFORT
  5. MAALOX UNKNOWN [Suspect]
     Indication: ABDOMINAL DISTENSION
  6. MAALOX UNKNOWN [Suspect]
     Indication: DYSPHAGIA
  7. MAALOX UNKNOWN [Suspect]
     Indication: OESOPHAGEAL SPASM
  8. MAALOX UNKNOWN [Suspect]
     Indication: OESOPHAGEAL PAIN
  9. DRUGS FOR ACID RELATED DISORDERS [Concomitant]
     Indication: GASTROOESOPHAGEAL REFLUX DISEASE
     Dosage: UNK, UNK
     Route: 048
  10. TYLENOL [Concomitant]
     Dosage: 2 UNK, UNK
     Dates: start: 20130520

REACTIONS (4)
  - Deep vein thrombosis [Unknown]
  - Multiple fractures [Recovering/Resolving]
  - Fall [Unknown]
  - Off label use [Unknown]
